FAERS Safety Report 9275758 (Version 1)
Quarter: 2013Q2

REPORT INFORMATION
  Report Type: Spontaneous
  Country: DE (occurrence: None)
  Receive Date: 20130430
  Receipt Date: 20130430
  Transmission Date: 20140414
  Serious: Yes (Hospitalization)
  Sender: FDA-Public Use
  Company Number: AUR-APL-2013-03329

PATIENT
  Age: 41 Year
  Sex: Male
  Weight: 90 kg

DRUGS (4)
  1. RAMIPRIL (RAMIPRIL) [Suspect]
     Indication: HYPERTENSION
     Dates: start: 20120927, end: 20121112
  2. RAMIPRIL/HYDROCHLOROTHIAZIDE [Suspect]
     Route: 048
     Dates: start: 20121113, end: 20121119
  3. METOCLOPRAMIDE (METOCLOPRAMIDE) [Suspect]
     Dosage: 90 GTT (30 GTT, 3 IN 1 D)
     Dates: start: 20121112, end: 20121114
  4. NOVAMINSULFON (METAMIZOLE SODIUM) [Concomitant]

REACTIONS (1)
  - Hepatitis toxic [None]
